FAERS Safety Report 21962890 (Version 1)
Quarter: 2023Q1

REPORT INFORMATION
  Report Type: Spontaneous
  Country: US (occurrence: US)
  Receive Date: 20230207
  Receipt Date: 20230207
  Transmission Date: 20230417
  Serious: Yes (Other)
  Sender: FDA-Public Use
  Company Number: US-AMERICAN REGENT INC-2023000267

PATIENT
  Age: 11 Year
  Sex: Male
  Weight: 38 kg

DRUGS (18)
  1. DEXAMETHASONE SODIUM PHOSPHATE [Suspect]
     Active Substance: DEXAMETHASONE SODIUM PHOSPHATE
     Indication: Acute lymphocytic leukaemia
     Dosage: UNK
     Route: 065
  2. DEXAMETHASONE SODIUM PHOSPHATE [Suspect]
     Active Substance: DEXAMETHASONE SODIUM PHOSPHATE
     Indication: Central nervous system inflammation
     Dosage: 0.4 MG/KG/D DIVIDED EVERY 6 H
     Route: 042
  3. PREDNISONE [Suspect]
     Active Substance: PREDNISONE
     Indication: Acute lymphocytic leukaemia
     Dosage: UNK
     Route: 065
  4. LEVETIRACETAM [Concomitant]
     Active Substance: LEVETIRACETAM
     Indication: Status epilepticus
     Dosage: 60 MG/KG
  5. LEVETIRACETAM [Concomitant]
     Active Substance: LEVETIRACETAM
     Dosage: UNK
     Route: 065
  6. FOSPHENYTOIN SODIUM [Concomitant]
     Active Substance: FOSPHENYTOIN SODIUM
     Indication: Status epilepticus
     Dosage: 20 MILLIEQUIVALENT PER KILOGRAM
  7. BLINATUMOMAB [Concomitant]
     Active Substance: BLINATUMOMAB
     Indication: Acute lymphocytic leukaemia
     Dosage: 72 H CONTINUOUS INFUSION
     Route: 042
  8. SERTRALINE [Concomitant]
     Active Substance: SERTRALINE HYDROCHLORIDE
     Indication: Depression
     Dosage: UNK
     Route: 065
  9. SULFAMETHOXAZOLE AND TRIMETHOPRIM [Concomitant]
     Active Substance: SULFAMETHOXAZOLE\TRIMETHOPRIM
     Indication: Infection prophylaxis
     Dosage: UNK
     Route: 065
  10. LORAZEPAM [Concomitant]
     Active Substance: LORAZEPAM
     Indication: Status epilepticus
     Dosage: TWO DOSES 0.1 MG/KG
     Route: 042
  11. MIDAZOLAM [Concomitant]
     Active Substance: MIDAZOLAM
     Indication: Status epilepticus
     Dosage: UNK CONTINUOUS INFUSION
     Route: 042
  12. PENTOBARBITAL [Concomitant]
     Active Substance: PENTOBARBITAL
     Indication: Status epilepticus
     Dosage: UNK
     Route: 042
  13. PENTOBARBITAL [Concomitant]
     Active Substance: PENTOBARBITAL
     Dosage: REQUIRED ESCALATING DOSES
     Route: 042
  14. PENTOBARBITAL [Concomitant]
     Active Substance: PENTOBARBITAL
     Dosage: WEANED AFTER 5 DAYS
     Route: 065
  15. VALPROIC ACID [Concomitant]
     Active Substance: VALPROIC ACID
     Indication: Epilepsy
     Dosage: 40 MG/KG/D
  16. VALPROIC ACID [Concomitant]
     Active Substance: VALPROIC ACID
     Dosage: 60 MG/KG/D
  17. VALPROIC ACID [Concomitant]
     Active Substance: VALPROIC ACID
     Dosage: WEANED COMPLETELY
     Route: 065
  18. LACOSAMIDE [Concomitant]
     Active Substance: LACOSAMIDE
     Indication: Status epilepticus
     Dosage: UNK
     Route: 065

REACTIONS (4)
  - Osteopenia [Unknown]
  - Spinal cord compression [Unknown]
  - Intervertebral disc protrusion [Unknown]
  - Product use in unapproved indication [Unknown]
